FAERS Safety Report 8510735-7 (Version None)
Quarter: 2012Q3

REPORT INFORMATION
  Report Type: 
  Country: None (occurrence: None)
  Receive Date: 20120716
  Receipt Date: 20120710
  Transmission Date: 20120928
  Serious: No
  Sender: FDA-Public Use
  Company Number: US-PFIZER INC-2012091458

PATIENT
  Sex: Male
  Weight: 68.027 kg

DRUGS (1)
  1. VIAGRA [Suspect]
     Indication: ERECTILE DYSFUNCTION
     Dosage: 100 MG, 2X/DAY
     Route: 048
     Dates: start: 20120301

REACTIONS (3)
  - PENILE PAIN [None]
  - SPONTANEOUS PENILE ERECTION [None]
  - POLLAKIURIA [None]
